FAERS Safety Report 23308549 (Version 1)
Quarter: 2023Q4

REPORT INFORMATION
  Report Type: Spontaneous
  Country: US (occurrence: None)
  Receive Date: 20231217
  Receipt Date: 20231217
  Transmission Date: 20240110
  Serious: Yes (Hospitalization, Disabling)
  Sender: FDA-Public Use
  Company Number: None

PATIENT
  Age: 23 Year
  Sex: Female
  Weight: 60.75 kg

DRUGS (1)
  1. .DELTA.8-TETRAHYDROCANNABINOL\HERBALS [Suspect]
     Active Substance: .DELTA.8-TETRAHYDROCANNABINOL\HERBALS
     Indication: Substance use
     Dosage: OTHER QUANTITY : 5 GUMMIES;?FREQUENCY : AT BEDTIME;?
     Route: 048
     Dates: start: 20230601, end: 20230812

REACTIONS (22)
  - Therapeutic product effect variable [None]
  - Adverse drug reaction [None]
  - Paranoia [None]
  - Psychotic disorder [None]
  - Anxiety [None]
  - Confusional state [None]
  - Derealisation [None]
  - Depersonalisation/derealisation disorder [None]
  - Dehydration [None]
  - Dizziness [None]
  - Headache [None]
  - Hypoaesthesia [None]
  - Suicidal ideation [None]
  - Post-traumatic stress disorder [None]
  - Panic attack [None]
  - Depression [None]
  - Tremor [None]
  - Disturbance in attention [None]
  - Tremor [None]
  - Dizziness [None]
  - Chest pain [None]
  - Vision blurred [None]

NARRATIVE: CASE EVENT DATE: 20230815
